FAERS Safety Report 6157415-3 (Version None)
Quarter: 2009Q2

REPORT INFORMATION
  Report Type: 
  Country: None (occurrence: None)
  Receive Date: 20090416
  Receipt Date: 20090407
  Transmission Date: 20091009
  Serious: Yes (Hospitalization)
  Sender: FDA-Public Use
  Company Number: FR-PFIZER INC-2009194130

PATIENT

DRUGS (8)
  1. ADRIAMYCIN RDF [Suspect]
     Indication: LYMPHOMA
     Dosage: TDD:50 MG/M2, UNK
     Route: 042
     Dates: start: 20081027, end: 20081208
  2. MABTHERA [Suspect]
     Indication: LYMPHOMA
     Dosage: TDD:375 MG/M2
     Route: 042
     Dates: start: 20081027, end: 20081208
  3. ONCOVIN [Suspect]
     Indication: LYMPHOMA
     Dosage: TDD: 1.4 MG/M2
     Route: 042
     Dates: start: 20081027, end: 20081208
  4. CYCLOPHOSPHAMIDE [Suspect]
     Indication: LYMPHOMA
     Dosage: TDD:750 MG/M2
     Route: 042
     Dates: start: 20081027, end: 20081208
  5. CARDIOXANE [Suspect]
     Indication: PROPHYLAXIS
     Dosage: TDD:1000 MG/M2
     Route: 042
  6. UROMITEXAN [Suspect]
     Indication: PROPHYLAXIS
     Dosage: TDD:750 MG/M2
     Route: 042
  7. CYTARABINE [Concomitant]
     Dosage: TDD: 15 MG
  8. METHOTREXATE [Concomitant]
     Indication: LYMPHOMA
     Dosage: TDD: 15 MG

REACTIONS (1)
  - LUNG DISORDER [None]
